FAERS Safety Report 9269592 (Version 3)
Quarter: 2013Q3

REPORT INFORMATION
  Report Type: Spontaneous
  Country: DK (occurrence: DK)
  Receive Date: 20130503
  Receipt Date: 20130702
  Transmission Date: 20140515
  Serious: Yes (Other)
  Sender: FDA-Public Use
  Company Number: DK-NOVOPROD-372787

PATIENT
  Age: 72 Year
  Sex: 0

DRUGS (8)
  1. INSULATARD [Suspect]
     Indication: DIABETES PROPHYLAXIS
     Dosage: UNK
     Route: 065
     Dates: start: 20130211, end: 20130211
  2. PROTAMINE SULPHATE [Suspect]
     Dosage: UNK
     Dates: start: 20130211
  3. METFORMIN [Concomitant]
  4. MAGNYL                             /00002701/ [Concomitant]
  5. RAMIPRIL [Concomitant]
  6. SIMVASTATIN [Concomitant]
  7. TAMSIN [Concomitant]
  8. ROXITHROMYCIN [Concomitant]

REACTIONS (2)
  - Pulmonary oedema [Unknown]
  - Blood pressure decreased [Recovered/Resolved]
